FAERS Safety Report 20563292 (Version 3)
Quarter: 2022Q1

REPORT INFORMATION
  Report Type: Report from Study
  Country: GB (occurrence: GB)
  Receive Date: 20220308
  Receipt Date: 20220325
  Transmission Date: 20220424
  Serious: Yes (Hospitalization)
  Sender: FDA-Public Use
  Company Number: GB-CELLTRION INC.-2020GB025140

PATIENT

DRUGS (32)
  1. TRASTUZUMAB [Suspect]
     Active Substance: TRASTUZUMAB
     Indication: HER2 positive breast cancer
     Dosage: 420 MILLIGRAM, Q3WK (PHARMACEUTICAL DOSE FORM: 293)
     Route: 042
     Dates: start: 20180302
  2. TRASTUZUMAB [Suspect]
     Active Substance: TRASTUZUMAB
     Dosage: 567 MILLIGRAM, Q3WK (PHARMACEUTICAL DOSE FORM: 293)
     Route: 042
     Dates: start: 20180303, end: 20180303
  3. PERTUZUMAB [Suspect]
     Active Substance: PERTUZUMAB
     Indication: Product used for unknown indication
     Dosage: 840 MILLIGRAM, Q3WK
     Route: 042
     Dates: start: 20180302, end: 20180302
  4. PERTUZUMAB [Suspect]
     Active Substance: PERTUZUMAB
     Dosage: 420 MILLIGRAM, Q3WK
     Route: 042
     Dates: start: 20180323, end: 20181130
  5. TAXOTERE [Suspect]
     Active Substance: DOCETAXEL
     Indication: HER2 positive breast cancer
     Dosage: 120 MILLIGRAM, Q3WK (PHARMACEUTICAL DOSE FORM: 120)
     Route: 042
     Dates: start: 20180525
  6. TAXOTERE [Suspect]
     Active Substance: DOCETAXEL
     Dosage: 130 MILLIGRAM, Q3WK (PHARMACEUTICAL DOSE FORM: 120)
     Route: 042
     Dates: start: 20180302, end: 20180524
  7. TAXOTERE [Suspect]
     Active Substance: DOCETAXEL
     Dosage: 100 MILLIGRAM, Q3WK (PHARMACEUTICAL DOSE FORM: 120)
     Route: 042
     Dates: start: 20180302, end: 20180322
  8. DOCETAXEL [Suspect]
     Active Substance: DOCETAXEL
     Indication: HER2 positive breast cancer
     Dosage: 100 MILLIGRAM, Q3WK
     Route: 042
     Dates: start: 20180302, end: 20180322
  9. DOCETAXEL [Suspect]
     Active Substance: DOCETAXEL
     Dosage: 120 MILLIGRAM, Q3WK
     Route: 042
     Dates: start: 20180525
  10. DOCETAXEL [Suspect]
     Active Substance: DOCETAXEL
     Dosage: 130 MILLIGRAM, Q3WK
     Route: 042
     Dates: start: 20180302, end: 20180524
  11. KADCYLA [Suspect]
     Active Substance: ADO-TRASTUZUMAB EMTANSINE
     Indication: HER2 positive breast cancer
     Dosage: 240 MICROGRAM, Q3WK
     Route: 042
     Dates: start: 20190202, end: 20190406
  12. KADCYLA [Suspect]
     Active Substance: ADO-TRASTUZUMAB EMTANSINE
     Dosage: 200 MILLIGRAM, Q3WK
     Route: 042
     Dates: start: 20190427
  13. FILGRASTIM [Suspect]
     Active Substance: FILGRASTIM
     Indication: Prophylaxis
     Dosage: 300 UG, 1X/DAY (CUMULATIVE DOSE TO FIRST REACTION: 8400 UG)
     Route: 058
     Dates: start: 20180324, end: 20180330
  14. FILGRASTIM [Suspect]
     Active Substance: FILGRASTIM
     Dosage: 300 UG, 1X/DAY (CUMULATIVE DOSE TO FIRST REACTION: 8400 UG)
     Route: 058
     Dates: start: 20180417, end: 20180423
  15. FILGRASTIM [Suspect]
     Active Substance: FILGRASTIM
     Dosage: 300 UG, 1X/DAY (CUMULATIVE DOSE TO FIRST REACTION: 8400 UG)
     Route: 058
     Dates: start: 20180505, end: 20180511
  16. FILGRASTIM [Suspect]
     Active Substance: FILGRASTIM
     Dosage: 300 UG, 1X/DAY (CUMULATIVE DOSE TO FIRST REACTION: 8400 UG)
     Route: 058
     Dates: start: 20180526, end: 20180601
  17. ALENDRONIC ACID [Concomitant]
     Active Substance: ALENDRONIC ACID
     Dosage: 70 UG, WEEKLY
     Route: 048
  18. ALENDRONIC ACID [Concomitant]
     Active Substance: ALENDRONIC ACID
     Dosage: 500 MG, 1X/DAY (CUMULATIVE DOSE TO FIRST REACTION: 1625000.0 MG)
     Route: 048
     Dates: start: 20100517
  19. HYPROMELLOSES [Concomitant]
     Active Substance: HYPROMELLOSES
     Dosage: 1 DROP
     Route: 047
     Dates: start: 20180615
  20. LEVOFLOXACIN [Concomitant]
     Active Substance: LEVOFLOXACIN
     Indication: Respiratory tract infection
     Dosage: UNK
     Route: 048
     Dates: start: 20180827, end: 20180902
  21. LEVOFLOXACIN [Concomitant]
     Active Substance: LEVOFLOXACIN
     Indication: Pyrexia
     Dosage: 500 MG, QD
     Route: 048
     Dates: start: 20200205, end: 20200212
  22. LOPERAMIDE [Concomitant]
     Active Substance: LOPERAMIDE
     Indication: Diarrhoea
     Dosage: 2 MG
     Route: 048
     Dates: start: 20180323
  23. OMEPRAZOLE [Concomitant]
     Active Substance: OMEPRAZOLE
     Indication: Gastrooesophageal reflux disease
     Dosage: 20 MG, QD
     Route: 048
     Dates: start: 201803
  24. ACETAMINOPHEN [Concomitant]
     Active Substance: ACETAMINOPHEN
     Dosage: 500 MG
     Route: 048
     Dates: start: 20100730
  25. DEXAMETHASONE [Concomitant]
     Active Substance: DEXAMETHASONE
     Indication: Prophylaxis
     Dosage: 8 MG, CYCLIC FREQUENCY 5 DAYS
     Route: 048
     Dates: start: 20180525, end: 20180527
  26. DEXAMETHASONE [Concomitant]
     Active Substance: DEXAMETHASONE
     Dosage: 8 MG, CYCLIC FREQUENCY 5 DAYS
     Route: 048
     Dates: start: 20180504, end: 20180506
  27. DEXAMETHASONE [Concomitant]
     Active Substance: DEXAMETHASONE
     Dosage: 8 MG, CYCLIC FREQUENCY 5 DAYS
     Route: 048
     Dates: start: 20180323, end: 20180325
  28. DEXAMETHASONE [Concomitant]
     Active Substance: DEXAMETHASONE
     Dosage: 8 MG, CYCLIC FREQUENCY 5 DAYS
     Route: 048
     Dates: start: 20180416, end: 20180418
  29. DEXAMETHASONE [Concomitant]
     Active Substance: DEXAMETHASONE
     Dosage: 16 MG, EVERY 1 DAY (8 MILLIGRAM, BID)
     Route: 048
     Dates: start: 20180504, end: 20180506
  30. DEXAMETHASONE [Concomitant]
     Active Substance: DEXAMETHASONE
     Dosage: 16 MG, EVERY 1 DAY (8 MILLIGRAM, BID)
     Route: 048
     Dates: start: 20180323, end: 20180325
  31. DEXAMETHASONE [Concomitant]
     Active Substance: DEXAMETHASONE
     Dosage: 16 MG, EVERY 1 DAY (8 MILLIGRAM, BID)
     Route: 048
     Dates: start: 20180525, end: 20180527
  32. DEXAMETHASONE [Concomitant]
     Active Substance: DEXAMETHASONE
     Dosage: 16 MG, EVERY 1 DAY (8 MILLIGRAM, BID)
     Route: 048
     Dates: start: 20180416, end: 20180418

REACTIONS (2)
  - Urinary tract infection [Recovered/Resolved]
  - Off label use [Unknown]

NARRATIVE: CASE EVENT DATE: 20190410
